FAERS Safety Report 12934309 (Version 1)
Quarter: 2016Q4

REPORT INFORMATION
  Report Type: Report from Study
  Country: None (occurrence: MX)
  Receive Date: 20161111
  Receipt Date: 20161111
  Transmission Date: 20170207
  Serious: Yes (Hospitalization)
  Sender: FDA-Public Use
  Company Number: MX-ABBVIE-16P-107-1777451-00

PATIENT
  Age: 67 Year
  Sex: Female
  Weight: 52 kg

DRUGS (2)
  1. VIEKIRA PAK [Suspect]
     Active Substance: DASABUVIR\OMBITASVIR\PARITAPREVIR\RITONAVIR
     Indication: HEPATITIS C
     Dosage: 3 IN THE MORNING AND 1 AT NIGHT
     Route: 048
     Dates: start: 20160910
  2. RIBAVIRIN. [Concomitant]
     Active Substance: RIBAVIRIN
     Indication: HEPATITIS C
     Dosage: 1-0-1
     Route: 048
     Dates: start: 20160910

REACTIONS (7)
  - Nausea [Unknown]
  - Decreased immune responsiveness [Unknown]
  - Diarrhoea [Unknown]
  - Asthenia [Unknown]
  - Peripheral swelling [Unknown]
  - Pyrexia [Unknown]
  - Dehydration [Unknown]

NARRATIVE: CASE EVENT DATE: 20161031
